FAERS Safety Report 10211626 (Version 1)
Quarter: 2014Q2

REPORT INFORMATION
  Report Type: Spontaneous
  Country: US (occurrence: US)
  Receive Date: 20140602
  Receipt Date: 20140602
  Transmission Date: 20141212
  Serious: No
  Sender: FDA-Public Use
  Company Number: US-PFIZER INC-2014148574

PATIENT
  Age: 52 Year
  Sex: Female
  Weight: 69.84 kg

DRUGS (7)
  1. GABAPENTIN [Suspect]
     Indication: DIABETIC NEUROPATHY
     Dosage: ONE CAPSULE OF 300 MG IN THE MORNING AND 2 CAPSULES OF 300 MG AT NIGHT
     Dates: start: 20140409, end: 2014
  2. GABAPENTIN [Suspect]
     Dosage: ONE CAPSULE OF 300 MG IN THE MORNING AND 2 CAPSULES OF 300 MG AT NIGHT
     Dates: start: 201405
  3. TRAZODONE [Concomitant]
     Indication: SLEEP DISORDER
     Dosage: 50 MG, DAILY
  4. ASPIRIN [Concomitant]
     Dosage: 81 MG, DAILY
  5. SIMVASTATIN [Concomitant]
     Indication: BLOOD CHOLESTEROL ABNORMAL
     Dosage: 20 MG, DAILY
  6. VITAMIN E [Concomitant]
     Dosage: 400 IU, DAILY
  7. VITAMIN B12 [Concomitant]
     Dosage: 1000 UG, DAILY

REACTIONS (4)
  - Dizziness [Unknown]
  - Hallucination [Unknown]
  - Lethargy [Unknown]
  - Activities of daily living impaired [Unknown]
